FAERS Safety Report 19260361 (Version 1)
Quarter: 2021Q2

REPORT INFORMATION
  Report Type: Spontaneous
  Country: US (occurrence: US)
  Receive Date: 20210514
  Receipt Date: 20210514
  Transmission Date: 20210717
  Serious: No
  Sender: FDA-Public Use
  Company Number: US-GE HEALTHCARE LIFE SCIENCES-2021CSU001495

PATIENT
  Age: 82 Year
  Sex: Female

DRUGS (2)
  1. GADOLINIUM (UNSPECIFIED) [Suspect]
     Active Substance: GADOLINIUM
     Indication: METASTASES TO CENTRAL NERVOUS SYSTEM
  2. GADOLINIUM (UNSPECIFIED) [Suspect]
     Active Substance: GADOLINIUM
     Indication: MAGNETIC RESONANCE IMAGING HEAD
     Dosage: UNK, SINGLE
     Route: 042

REACTIONS (1)
  - Extravasation [Recovered/Resolved]
